FAERS Safety Report 18062174 (Version 1)
Quarter: 2020Q3

REPORT INFORMATION
  Report Type: Spontaneous
  Country: ES (occurrence: ES)
  Receive Date: 20200723
  Receipt Date: 20200723
  Transmission Date: 20201103
  Serious: Yes (Other)
  Sender: FDA-Public Use
  Company Number: ES-GILEAD-2020-0484769

PATIENT
  Age: 19 Year
  Sex: Female

DRUGS (1)
  1. YESCARTA [Suspect]
     Active Substance: AXICABTAGENE CILOLEUCEL
     Indication: LYMPHOMA
     Dosage: 0,4?2 X10 ELEVADO A 6 CELULAS
     Route: 042
     Dates: start: 20200601, end: 20200601

REACTIONS (6)
  - Pyrexia [Recovered/Resolved]
  - Tremor [Recovered/Resolved]
  - Dysgraphia [Recovered/Resolved]
  - Neurotoxicity [Recovered/Resolved]
  - Tachycardia [Recovered/Resolved]
  - Cytokine release syndrome [Recovered/Resolved]

NARRATIVE: CASE EVENT DATE: 20200602
